FAERS Safety Report 6295655-3 (Version None)
Quarter: 2009Q3

REPORT INFORMATION
  Report Type: 
  Country: None (occurrence: None)
  Receive Date: 20090803
  Receipt Date: 20090803
  Transmission Date: 20100115
  Serious: No
  Sender: FDA-Public Use
  Company Number: None

PATIENT

DRUGS (1)
  1. METOPROLOL TARTRATE [Suspect]
     Indication: CARDIAC DISORDER
     Dosage: 2.5ML BID PO
     Route: 048

REACTIONS (2)
  - MEDICATION ERROR [None]
  - PRODUCT COMPOUNDING QUALITY ISSUE [None]
